FAERS Safety Report 19361621 (Version 1)
Quarter: 2021Q2

REPORT INFORMATION
  Report Type: Report from Study
  Country: None (occurrence: US)
  Receive Date: 20210602
  Receipt Date: 20210602
  Transmission Date: 20210717
  Serious: No
  Sender: FDA-Public Use
  Company Number: US-MDD US OPERATIONS-USW202005-000960

PATIENT
  Sex: Male

DRUGS (1)
  1. APOKYN [Suspect]
     Active Substance: APOMORPHINE HYDROCHLORIDE
     Indication: PARKINSON^S DISEASE
     Dosage: 3ML CARTRIDGE 1 EA CART, 0.3 ML/DOSE DO NOT EXCEED FIVE DOSES PER DAY
     Route: 058

REACTIONS (4)
  - Dizziness [Unknown]
  - Sedation [Unknown]
  - Nausea [Unknown]
  - Vomiting [Unknown]
